FAERS Safety Report 14764680 (Version 2)
Quarter: 2018Q2

REPORT INFORMATION
  Report Type: Spontaneous
  Country: JP (occurrence: JP)
  Receive Date: 20180416
  Receipt Date: 20180622
  Transmission Date: 20180711
  Serious: Yes (Hospitalization, Disabling, Other)
  Sender: FDA-Public Use
  Company Number: JP-JNJFOC-20180418092

PATIENT
  Age: 85 Year
  Sex: Male
  Weight: 57 kg

DRUGS (5)
  1. MAINTATE [Concomitant]
     Active Substance: BISOPROLOL FUMARATE
     Indication: ATRIAL FIBRILLATION
     Route: 048
  2. MONTELUKAST [Concomitant]
     Active Substance: MONTELUKAST SODIUM
     Indication: ASTHMA
     Route: 048
  3. SPIRIVA [Concomitant]
     Active Substance: TIOTROPIUM BROMIDE MONOHYDRATE
     Indication: ASTHMA
     Route: 055
  4. FLUTICASONE PROPIONATE. [Concomitant]
     Active Substance: FLUTICASONE PROPIONATE
     Indication: ASTHMA
     Route: 055
  5. XARELTO [Suspect]
     Active Substance: RIVAROXABAN
     Indication: ATRIAL FIBRILLATION
     Route: 048

REACTIONS (7)
  - Haemorrhagic transformation stroke [Unknown]
  - Cognitive disorder [Unknown]
  - Cerebral infarction [Unknown]
  - Fall [Unknown]
  - Embolic stroke [Recovered/Resolved with Sequelae]
  - Agnosia [Unknown]
  - Apraxia [Unknown]

NARRATIVE: CASE EVENT DATE: 20180403
